FAERS Safety Report 6346612-X (Version None)
Quarter: 2009Q3

REPORT INFORMATION
  Report Type: 
  Country: None (occurrence: None)
  Receive Date: 20090827
  Receipt Date: 20090818
  Transmission Date: 20100115
  Serious: Yes (Hospitalization)
  Sender: FDA-Public Use
  Company Number: WAES 0908USA03936

PATIENT
  Age: 85 Year
  Sex: Male

DRUGS (9)
  1. ZETIA [Suspect]
     Indication: HYPERCHOLESTEROLAEMIA
     Dosage: 10 MG DAILY PO
     Route: 048
     Dates: start: 20080501, end: 20080507
  2. SINGULAIR [Concomitant]
  3. ASPIRIN [Concomitant]
  4. CARBOCYSTEINE [Concomitant]
  5. DIGOXIN [Concomitant]
  6. FUROSEMIDE [Concomitant]
  7. NIFEDIPINE [Concomitant]
  8. OMEPRAZOLE [Concomitant]
  9. TULOBUTEROL [Concomitant]

REACTIONS (1)
  - NEPHROTIC SYNDROME [None]
